FAERS Safety Report 4880413-4 (Version None)
Quarter: 2005Q4

REPORT INFORMATION
  Report Type: 
  Country: None (occurrence: None)
  Receive Date: 20051223
  Receipt Date: 20051026
  Transmission Date: 20060501
  Serious: No
  Sender: FDA-Public Use
  Company Number: 05P-163-0303045-00

PATIENT
  Age: 38 Year
  Sex: Female
  Weight: 79.3795 kg

DRUGS (16)
  1. HUMIRA [Suspect]
     Indication: PSORIATIC ARTHROPATHY
     Dosage: SEE IMAGE
     Route: 058
     Dates: start: 20041228, end: 20050101
  2. HUMIRA [Suspect]
     Indication: RHEUMATOID ARTHRITIS
     Dosage: SEE IMAGE
     Route: 058
     Dates: start: 20041228, end: 20050101
  3. HUMIRA [Suspect]
     Indication: PSORIATIC ARTHROPATHY
     Dosage: SEE IMAGE
     Route: 058
     Dates: start: 20050201, end: 20050201
  4. HUMIRA [Suspect]
     Indication: RHEUMATOID ARTHRITIS
     Dosage: SEE IMAGE
     Route: 058
     Dates: start: 20050201, end: 20050201
  5. HUMIRA [Suspect]
     Indication: PSORIATIC ARTHROPATHY
     Dosage: SEE IMAGE
     Route: 058
     Dates: start: 20050201, end: 20050614
  6. HUMIRA [Suspect]
     Indication: RHEUMATOID ARTHRITIS
     Dosage: SEE IMAGE
     Route: 058
     Dates: start: 20050201, end: 20050614
  7. HUMIRA [Suspect]
     Indication: PSORIATIC ARTHROPATHY
     Dosage: SEE IMAGE
     Route: 058
     Dates: start: 20050101, end: 20050818
  8. HUMIRA [Suspect]
     Indication: RHEUMATOID ARTHRITIS
     Dosage: SEE IMAGE
     Route: 058
     Dates: start: 20050101, end: 20050818
  9. HUMIRA [Suspect]
     Indication: PSORIATIC ARTHROPATHY
     Dosage: SEE IMAGE
     Route: 058
     Dates: start: 20051018
  10. HUMIRA [Suspect]
     Indication: RHEUMATOID ARTHRITIS
     Dosage: SEE IMAGE
     Route: 058
     Dates: start: 20051018
  11. ORTHO NOVA [Concomitant]
  12. VICODIN [Concomitant]
  13. MULTIVITAMIN [Concomitant]
  14. BROMELIN [Concomitant]
  15. FLAXAMINE [Concomitant]
  16. LINSEED OIL [Concomitant]

REACTIONS (5)
  - INFLUENZA [None]
  - NASOPHARYNGITIS [None]
  - RASH PRURITIC [None]
  - SKIN BURNING SENSATION [None]
  - URTICARIA [None]
